FAERS Safety Report 5086673-1 (Version None)
Quarter: 2006Q3

REPORT INFORMATION
  Report Type: 
  Country: None (occurrence: None)
  Receive Date: 20060823
  Receipt Date: 20051128
  Transmission Date: 20061208
  Serious: No
  Sender: FDA-Public Use
  Company Number: US-GLAXOSMITHKLINE-A0583654A

PATIENT
  Age: 59 Year
  Sex: Male

DRUGS (3)
  1. MALARONE [Suspect]
     Indication: MALARIA PROPHYLAXIS
     Dosage: 1TAB PER DAY
     Route: 048
     Dates: start: 20051030, end: 20051114
  2. AZITHROMYCIN [Concomitant]
  3. ACIPHEX [Concomitant]

REACTIONS (5)
  - ABDOMINAL DISCOMFORT [None]
  - ANOREXIA [None]
  - HEADACHE [None]
  - NAUSEA [None]
  - PARAESTHESIA [None]
